FAERS Safety Report 6051806-7 (Version None)
Quarter: 2009Q1

REPORT INFORMATION
  Report Type: 
  Country: None (occurrence: None)
  Receive Date: 20090126
  Receipt Date: 20090114
  Transmission Date: 20090719
  Serious: Yes (Other)
  Sender: FDA-Public Use
  Company Number: ES-PFIZER INC-2008155734

PATIENT

DRUGS (4)
  1. LYRICA [Suspect]
  2. TRAMADOL HYDROCHLORIDE [Interacting]
  3. DURAGESIC-100 [Interacting]
     Indication: OSTEOARTHRITIS
     Dosage: 75 UG, UNK
     Route: 062
     Dates: end: 20080819
  4. DIAZEPAM [Interacting]

REACTIONS (2)
  - DRUG INTERACTION [None]
  - RESPIRATORY FAILURE [None]
